FAERS Safety Report 16278744 (Version 1)
Quarter: 2019Q2

REPORT INFORMATION
  Report Type: Spontaneous
  Country: US (occurrence: US)
  Receive Date: 20190506
  Receipt Date: 20190506
  Transmission Date: 20190711
  Serious: No
  Sender: FDA-Public Use
  Company Number: US-MTPC-MTDA2019-0049302

PATIENT

DRUGS (1)
  1. RADICAVA [Suspect]
     Active Substance: EDARAVONE
     Indication: PRODUCT USED FOR UNKNOWN INDICATION
     Dosage: 60 MILLIGRAM OVER 60 MINUTES, QD FOR ANY 10 OF 14 DAYS FOLLOWED BY CESSATION FOR 14 DAYS
     Route: 042

REACTIONS (1)
  - Herpes zoster [Unknown]
